FAERS Safety Report 25002536 (Version 1)
Quarter: 2025Q1

REPORT INFORMATION
  Report Type: Spontaneous
  Country: US (occurrence: US)
  Receive Date: 20250224
  Receipt Date: 20250224
  Transmission Date: 20250408
  Serious: Yes (Other)
  Sender: SANOFI AVENTIS
  Company Number: US-SA-2025SA054771

PATIENT
  Sex: Female

DRUGS (5)
  1. KEVZARA [Suspect]
     Active Substance: SARILUMAB
     Indication: Hypothyroidism
     Dosage: 150 MG, QOW
     Route: 058
  2. FOLIC ACID [Concomitant]
     Active Substance: FOLIC ACID
  3. LEVOTHYROXINE [Concomitant]
     Active Substance: LEVOTHYROXINE
  4. METHOTREXATE [Concomitant]
     Active Substance: METHOTREXATE
  5. TRELEGY ELLIPTA [Concomitant]
     Active Substance: FLUTICASONE FUROATE\UMECLIDINIUM BROMIDE\VILANTEROL TRIFENATATE

REACTIONS (7)
  - Breast cancer [Not Recovered/Not Resolved]
  - Chronic obstructive pulmonary disease [Not Recovered/Not Resolved]
  - Seasonal affective disorder [Not Recovered/Not Resolved]
  - Movement disorder [Not Recovered/Not Resolved]
  - Gait disturbance [Not Recovered/Not Resolved]
  - Loss of personal independence in daily activities [Not Recovered/Not Resolved]
  - Product use in unapproved indication [Unknown]
